FAERS Safety Report 4361203-8 (Version None)
Quarter: 2004Q2

REPORT INFORMATION
  Report Type: 
  Country: None (occurrence: None)
  Receive Date: 20040518
  Receipt Date: 20040504
  Transmission Date: 20050107
  Serious: Yes (Hospitalization, Other)
  Sender: FDA-Public Use
  Company Number: USA-2002-0002721

PATIENT
  Age: 44 Year
  Sex: Male

DRUGS (43)
  1. OXYCONTIN [Suspect]
     Indication: PAIN
     Dosage: MG, SEE TEXT, ORAL
     Route: 048
     Dates: start: 19960322
  2. METHADONE (METHADONE) [Concomitant]
  3. IMITREX ^GLAXO^ (SUMATRIPTAN) [Concomitant]
  4. RITALIN TAB [Concomitant]
  5. ULTRAM [Concomitant]
  6. PROZAC [Concomitant]
  7. KLONOPIN [Concomitant]
  8. VISTARIL [Concomitant]
  9. LIDOCAINE SPRAY (LIDOCAINE) [Concomitant]
  10. PERCOCET [Concomitant]
  11. MARCAINE [Concomitant]
  12. HYDROMORPHONE HCL [Concomitant]
  13. TYLENOL [Concomitant]
  14. ANCEF [Concomitant]
  15. LEVORPHANOL (LEVORPHANOL) [Concomitant]
  16. FENTANYL [Concomitant]
  17. VALIUM [Concomitant]
  18. DEXTROSTAT (DEXAMFETAMINE SULFATE) [Concomitant]
  19. SENOKOT-S (DOCUSATE SODIUM, SENNOSIDE A+B) TABLET [Concomitant]
  20. DULCOLAX [Concomitant]
  21. ASPIRIN [Concomitant]
  22. IRON (IRON) [Concomitant]
  23. COLACE CAPSULES (DOCUSATE SODIUM) CAPSULE [Concomitant]
  24. LOVENOX [Concomitant]
  25. DESYREL [Concomitant]
  26. DILAUDID [Concomitant]
  27. ROXICODONE [Concomitant]
  28. ORUVAIL [Concomitant]
  29. BACLOFEN [Concomitant]
  30. SOMA [Concomitant]
  31. CATAPRES-TTS-1 [Concomitant]
  32. SKELAXIN [Concomitant]
  33. NADOLOL [Concomitant]
  34. TRILISATE (MAGNESIUM SALICYLATE) [Concomitant]
  35. AMOXIL [Concomitant]
  36. ZOSTRIX (CAPSAICIN) [Concomitant]
  37. FOSAMAX [Concomitant]
  38. NEURONTIN [Concomitant]
  39. HYDROXYZINE PAMOATE [Concomitant]
  40. CELEBREX [Concomitant]
  41. PROVIGIL [Concomitant]
  42. OXYCODONE HCL [Concomitant]
  43. WELLBUTRIN SR [Concomitant]

REACTIONS (42)
  - AFFECTIVE DISORDER [None]
  - ANOREXIA [None]
  - ANXIETY [None]
  - ARTHRALGIA [None]
  - BACK PAIN [None]
  - BURSITIS [None]
  - BUTTOCK PAIN [None]
  - CELLULITIS [None]
  - CONSTIPATION [None]
  - DEPRESSION [None]
  - DISLOCATION OF JOINT PROSTHESIS [None]
  - DISTURBANCE IN ATTENTION [None]
  - DRUG DEPENDENCE [None]
  - DRUG TOLERANCE [None]
  - DRUG WITHDRAWAL SYNDROME [None]
  - EXOSTOSIS [None]
  - FALL [None]
  - FEELING COLD [None]
  - HEADACHE [None]
  - HOT FLUSH [None]
  - HYPOAESTHESIA [None]
  - INCONTINENCE [None]
  - INSOMNIA [None]
  - IRRITABILITY [None]
  - LETHARGY [None]
  - MARKEDLY REDUCED DIETARY INTAKE [None]
  - MUSCLE CRAMP [None]
  - MUSCLE SPASMS [None]
  - NAUSEA [None]
  - NERVOUSNESS [None]
  - NIGHT SWEATS [None]
  - PAIN [None]
  - POST PROCEDURAL COMPLICATION [None]
  - PRURITUS [None]
  - PYREXIA [None]
  - SEDATION [None]
  - SINUSITIS [None]
  - SOMNOLENCE [None]
  - TEMPERATURE INTOLERANCE [None]
  - TREMOR [None]
  - VISION BLURRED [None]
  - VOMITING [None]
